FAERS Safety Report 9924325 (Version 1)
Quarter: 2014Q1

REPORT INFORMATION
  Report Type: Report from Study
  Country: US (occurrence: US)
  Receive Date: 20140226
  Receipt Date: 20140226
  Transmission Date: 20141002
  Serious: Yes (Other)
  Sender: FDA-Public Use
  Company Number: US-ROCHE-1330206

PATIENT
  Age: 79 Year
  Sex: Female

DRUGS (13)
  1. LUCENTIS [Suspect]
     Indication: AGE-RELATED MACULAR DEGENERATION
     Dosage: 29/OCT/2010, 20/DEC/2010, 15/MAR/2011, 06/SEP/2011, 27/NOV/2012, 04/JAN/2013
     Route: 065
     Dates: start: 20100330
  2. LUCENTIS [Suspect]
     Dosage: 04/JAN/2013
     Route: 050
  3. AVASTIN [Suspect]
     Indication: PRODUCT USED FOR UNKNOWN INDICATION
     Dosage: 16/MAR/2010
     Route: 065
     Dates: start: 20100113
  4. ASPIRIN [Concomitant]
     Route: 065
  5. LISINOPRIL [Concomitant]
  6. METOPROLOL TARTRATE [Concomitant]
  7. AKTEN [Concomitant]
     Route: 065
  8. POVIDONE [Concomitant]
     Route: 065
  9. SYSTANE [Concomitant]
  10. VITAMIN C [Concomitant]
  11. VITAMIN D2 [Concomitant]
     Route: 065
  12. TROPICAMIDE EYE DROPS [Concomitant]
     Route: 065
  13. PHENYLEPHRINE EYE DROPS [Concomitant]
     Dosage: BOTH EYE
     Route: 065

REACTIONS (13)
  - Basal cell carcinoma [Unknown]
  - Polymenorrhoea [Unknown]
  - Menorrhagia [Unknown]
  - Vocal cord polyp [Unknown]
  - Photopsia [Unknown]
  - Visual impairment [Unknown]
  - Visual acuity reduced [Unknown]
  - Visual field defect [Unknown]
  - Cataract [Unknown]
  - Hypercholesterolaemia [Unknown]
  - Hypertension [Unknown]
  - Posterior capsule opacification [Unknown]
  - Blepharoplasty [Unknown]
